FAERS Safety Report 8776644 (Version 1)
Quarter: 2012Q4

REPORT INFORMATION
  Report Type: 
  Country: DE (occurrence: DE)
  Receive Date: 20120911
  Receipt Date: 20120911
  Transmission Date: 20130627
  Serious: Yes (Hospitalization)
  Sender: FDA-Public Use
  Company Number: DE-ROCHE-1120694

PATIENT
  Age: 79 Year
  Sex: Female

DRUGS (9)
  1. LUCENTIS [Suspect]
     Indication: AGE-RELATED MACULAR DEGENERATION
     Route: 065
     Dates: start: 20120316, end: 201208
  2. INSULIN [Concomitant]
  3. L-THYROXINE [Concomitant]
  4. ALLOPURINOL [Concomitant]
  5. MOXONIDINE [Concomitant]
  6. HYDROCHLOROTHIAZIDE [Concomitant]
  7. BISO LICH [Concomitant]
  8. AMLODIPINE [Concomitant]
  9. RAMIPRIL [Concomitant]

REACTIONS (1)
  - Osteoarthritis [Not Recovered/Not Resolved]
